FAERS Safety Report 25922041 (Version 2)
Quarter: 2025Q4

REPORT INFORMATION
  Report Type: Spontaneous
  Country: JP (occurrence: JP)
  Receive Date: 20251015
  Receipt Date: 20251028
  Transmission Date: 20260118
  Serious: Yes (Other)
  Sender: CHEPLAPHARM
  Company Number: JP-CP_KK-2025JP004994

PATIENT
  Age: 75 Year
  Sex: Female

DRUGS (2)
  1. HYDROXYUREA [Suspect]
     Active Substance: HYDROXYUREA
     Indication: Polycythaemia vera
     Dosage: UNK
     Route: 048
  2. RUXOLITINIB PHOSPHATE [Suspect]
     Active Substance: RUXOLITINIB PHOSPHATE
     Indication: Polycythaemia vera
     Dosage: UNK
     Route: 048

REACTIONS (2)
  - Sensory disturbance [Recovering/Resolving]
  - Spinal cord haematoma [Not Recovered/Not Resolved]
